FAERS Safety Report 5216056-2 (Version None)
Quarter: 2006Q4

REPORT INFORMATION
  Report Type: 
  Country: None (occurrence: None)
  Receive Date: 20061122
  Receipt Date: 20060626
  Transmission Date: 20070319
  Serious: Yes (Other)
  Sender: FDA-Public Use
  Company Number: 2006025903

PATIENT
  Sex: Female

DRUGS (3)
  1. LIPITOR [Suspect]
     Indication: DRUG USE FOR UNKNOWN INDICATION
  2. LYRICA [Suspect]
     Indication: NEUROPATHY
     Dosage: (1 IN 1 D)
     Dates: start: 20060101
  3. ALL OTHER THERAPEUTIC PRODUCTS (ALL OTHER THERAPEUTIC PRODUCTS) [Concomitant]

REACTIONS (2)
  - ARTHRALGIA [None]
  - SOMNOLENCE [None]
